FAERS Safety Report 6361786-2 (Version None)
Quarter: 2009Q3

REPORT INFORMATION
  Report Type: 
  Country: None (occurrence: None)
  Receive Date: 20090918
  Receipt Date: 20090908
  Transmission Date: 20100115
  Serious: Yes (Hospitalization, Other)
  Sender: FDA-Public Use
  Company Number: US-AMGEN-STX363441

PATIENT
  Sex: Male

DRUGS (4)
  1. VECTIBIX [Suspect]
     Indication: COLORECTAL CANCER
  2. DILANTIN [Concomitant]
  3. COUMADIN [Concomitant]
  4. FLOMAX [Concomitant]

REACTIONS (6)
  - BLISTER [None]
  - BLOOD MAGNESIUM DECREASED [None]
  - DYSPNOEA [None]
  - PYREXIA [None]
  - RASH [None]
  - SKIN DISORDER [None]
